FAERS Safety Report 7233436-4 (Version None)
Quarter: 2011Q1

REPORT INFORMATION
  Report Type: 
  Country: None (occurrence: None)
  Receive Date: 20110119
  Receipt Date: 20110106
  Transmission Date: 20110831
  Serious: Yes (Hospitalization)
  Sender: FDA-Public Use
  Company Number: CA-ELI_LILLY_AND_COMPANY-CA201101002143

PATIENT
  Sex: Male

DRUGS (10)
  1. NORVASC [Concomitant]
     Dosage: 5 MG, DAILY (1/D)
  2. ZYPREXA [Suspect]
     Dosage: 5 MG, DAILY (1/D)
  3. LIPIDIL [Concomitant]
  4. CLOZARIL [Concomitant]
     Dosage: 100 MG, DAILY (1/D)
     Route: 048
     Dates: end: 20101022
  5. CLOZARIL [Concomitant]
     Dosage: 300 MG, DAILY (1/D)
     Dates: start: 20101129
  6. PROCYCLIDINE [Concomitant]
     Dosage: 5 MG, 2/D
  7. DIVALPROEX SODIUM [Concomitant]
     Dosage: 10 D/F, DAILY (1/D)
  8. KEMADRIN [Concomitant]
     Dosage: UNK, 2/D
  9. CLOPIXOL [Concomitant]
     Dosage: UNK, 3/W
     Route: 030
  10. EPIVAL [Concomitant]

REACTIONS (1)
  - SLEEP APNOEA SYNDROME [None]
